FAERS Safety Report 8895883 (Version 1)
Quarter: 2012Q4

REPORT INFORMATION
  Report Type: 
  Country: US (occurrence: US)
  Receive Date: 20121108
  Receipt Date: 20121108
  Transmission Date: 20130627
  Serious: Yes (Other)
  Sender: FDA-Public Use
  Company Number: US-ABBOTT-12P-163-1004991-00

PATIENT
  Age: 46 Year
  Sex: Female
  Weight: 61.29 kg

DRUGS (1)
  1. LUPRON [Suspect]
     Indication: ENDOMETRIOSIS
     Dosage: One injection
     Dates: start: 200909, end: 200909

REACTIONS (10)
  - Hysterectomy [Unknown]
  - Abdominal pain [Unknown]
  - Abdominal pain [Recovered/Resolved]
  - Bone pain [Recovered/Resolved]
  - Myalgia [Recovered/Resolved]
  - Gait disturbance [Recovered/Resolved]
  - Arthralgia [Recovered/Resolved]
  - Weight increased [Not Recovered/Not Resolved]
  - Hot flush [Recovered/Resolved]
  - Feeling abnormal [Recovered/Resolved]
